FAERS Safety Report 12553019 (Version 4)
Quarter: 2018Q3

REPORT INFORMATION
  Report Type: Spontaneous
  Country: US (occurrence: US)
  Receive Date: 20160713
  Receipt Date: 20180820
  Transmission Date: 20181010
  Serious: No
  Sender: FDA-Public Use
  Company Number: US-ACTELION-A-NJ2016-138063

PATIENT
  Age: 42 Year
  Sex: Male
  Weight: 92.97 kg

DRUGS (7)
  1. ADEMPAS [Concomitant]
     Active Substance: RIOCIGUAT
  2. ORENITRAM [Suspect]
     Active Substance: TREPROSTINIL
     Dosage: 12 MG, TID
     Route: 065
  3. XARELTO [Concomitant]
     Active Substance: RIVAROXABAN
  4. ORENITRAM [Suspect]
     Active Substance: TREPROSTINIL
     Indication: PRODUCT USED FOR UNKNOWN INDICATION
     Dosage: UNK
     Route: 065
  5. ORENITRAM [Suspect]
     Active Substance: TREPROSTINIL
     Dosage: 11 MG, TID
     Route: 065
  6. OPSUMIT [Suspect]
     Active Substance: MACITENTAN
     Indication: PULMONARY ARTERIAL HYPERTENSION
     Dosage: 10 MG, QD
     Route: 048
     Dates: start: 20160509
  7. ADCIRCA [Concomitant]
     Active Substance: TADALAFIL

REACTIONS (3)
  - Tooth disorder [Unknown]
  - Headache [Unknown]
  - Flushing [Recovering/Resolving]

NARRATIVE: CASE EVENT DATE: 20160612
